FAERS Safety Report 8075725-X (Version None)
Quarter: 2012Q1

REPORT INFORMATION
  Report Type: 
  Country: None (occurrence: None)
  Receive Date: 20120127
  Receipt Date: 20120120
  Transmission Date: 20120608
  Serious: Yes (Other)
  Sender: FDA-Public Use
  Company Number: BE-GENZYME-MOZO-1000608

PATIENT
  Sex: Female
  Weight: 47 kg

DRUGS (5)
  1. MOZOBIL [Suspect]
     Indication: HODGKIN'S DISEASE
  2. MOZOBIL [Suspect]
     Indication: HAEMATOPOIETIC STEM CELL MOBILISATION
     Dosage: 0.6 ML, QD
     Route: 058
     Dates: start: 20111207, end: 20111207
  3. NEUPOGEN [Concomitant]
     Indication: HAEMATOPOIETIC STEM CELL MOBILISATION
     Dosage: 30 IU, QD
     Route: 065
     Dates: start: 20111204, end: 20111205
  4. NEUPOGEN [Concomitant]
     Dosage: 30 IU, BID
     Route: 065
     Dates: start: 20111205, end: 20111208
  5. NEULASTA [Concomitant]
     Indication: CHEMOTHERAPY
     Dosage: 1 UNK, ONCE
     Route: 065

REACTIONS (1)
  - HYPERSENSITIVITY [None]
